FAERS Safety Report 16131118 (Version 1)
Quarter: 2019Q1

REPORT INFORMATION
  Report Type: Spontaneous
  Country: US (occurrence: US)
  Receive Date: 20190328
  Receipt Date: 20190328
  Transmission Date: 20190418
  Serious: Yes (Hospitalization)
  Sender: FDA-Public Use
  Company Number: US-ACTELION-A-NJ2019-185254

PATIENT
  Age: 58 Year
  Sex: Female
  Weight: 63.49 kg

DRUGS (3)
  1. OPSUMIT [Suspect]
     Active Substance: MACITENTAN
     Indication: PULMONARY ARTERIAL HYPERTENSION
     Dosage: 10 MG, QD
     Route: 048
  2. ELIQUIS [Concomitant]
     Active Substance: APIXABAN
  3. TYVASO [Concomitant]
     Active Substance: TREPROSTINIL

REACTIONS (7)
  - Dyspnoea [Unknown]
  - Vomiting [Unknown]
  - Dizziness [Unknown]
  - Oxygen consumption increased [Unknown]
  - Syncope [Unknown]
  - Nasal congestion [Unknown]
  - Heart rate increased [Unknown]

NARRATIVE: CASE EVENT DATE: 20190304
